FAERS Safety Report 11625299 (Version 1)
Quarter: 2015Q4

REPORT INFORMATION
  Report Type: Spontaneous
  Country: US (occurrence: US)
  Receive Date: 20151013
  Receipt Date: 20151013
  Transmission Date: 20160304
  Serious: No
  Sender: FDA-Public Use
  Company Number: US-GLAXOSMITHKLINE-US2015GSK127366

PATIENT
  Age: 40 Year
  Sex: Male

DRUGS (1)
  1. TANZEUM [Suspect]
     Active Substance: ALBIGLUTIDE
     Indication: TYPE 2 DIABETES MELLITUS
     Dosage: 30 MG, WE
     Dates: start: 20150730, end: 20150810

REACTIONS (3)
  - Nausea [Recovered/Resolved]
  - Back pain [Recovered/Resolved]
  - Change of bowel habit [Recovered/Resolved]

NARRATIVE: CASE EVENT DATE: 20150730
